FAERS Safety Report 7930858-0 (Version None)
Quarter: 2011Q4

REPORT INFORMATION
  Report Type: 
  Country: None (occurrence: None)
  Receive Date: 20111117
  Receipt Date: 20110502
  Transmission Date: 20120403
  Serious: Yes (Other)
  Sender: FDA-Public Use
  Company Number: 20110004USST

PATIENT
  Sex: Male

DRUGS (3)
  1. KEPPRA [Concomitant]
  2. L-CARNITINE [Suspect]
     Indication: PRODUCT USED FOR UNKNOWN INDICATION
     Dosage: 4620 MG PO
     Route: 048
     Dates: start: 20080117
  3. VALPROATE SODIUM [Concomitant]

REACTIONS (2)
  - EPILEPSY [None]
  - CONDITION AGGRAVATED [None]
